FAERS Safety Report 14169510 (Version 1)
Quarter: 2017Q4

REPORT INFORMATION
  Report Type: Spontaneous
  Country: US (occurrence: US)
  Receive Date: 20171107
  Receipt Date: 20171107
  Transmission Date: 20180321
  Serious: Yes (Disabling)
  Sender: FDA-Public Use
  Company Number: None

PATIENT
  Sex: Female
  Weight: 92.52 kg

DRUGS (3)
  1. LISINOPRIL/HCTZ [Concomitant]
     Active Substance: HYDROCHLOROTHIAZIDE\LISINOPRIL
  2. AMITIZA [Concomitant]
     Active Substance: LUBIPROSTONE
  3. BUPRENORPHINE-NALOXONE [Suspect]
     Active Substance: BUPRENORPHINE HYDROCHLORIDE\NALOXONE HYDROCHLORIDE
     Indication: DRUG DEPENDENCE
     Dosage: ?          QUANTITY:14 TABLET(S);?
     Route: 060

REACTIONS (9)
  - Weight increased [None]
  - Constipation [None]
  - Headache [None]
  - Nausea [None]
  - Blood pressure increased [None]
  - Dyschezia [None]
  - Withdrawal syndrome [None]
  - Migraine [None]
  - Abdominal pain upper [None]

NARRATIVE: CASE EVENT DATE: 20171031
